FAERS Safety Report 9503579 (Version 1)
Quarter: 2013Q1

REPORT INFORMATION
  Report Type: Spontaneous
  Country: US (occurrence: None)
  Receive Date: 20130130
  Receipt Date: 20130130
  Transmission Date: 20140127
  Serious: Yes (Other)
  Sender: FDA-Public Use
  Company Number: US2012100008416

PATIENT
  Sex: Female
  Weight: 136.1 kg

DRUGS (2)
  1. BYDUREON [Suspect]
     Indication: TYPE 2 DIABETES MELLITUS
  2. DRUG USED IN DIBETES [Concomitant]

REACTIONS (2)
  - Renal impairment [None]
  - Feeling abnormal [None]
